FAERS Safety Report 14565560 (Version 1)
Quarter: 2018Q1

REPORT INFORMATION
  Report Type: Report from Study
  Country: MX (occurrence: MX)
  Receive Date: 20180223
  Receipt Date: 20180223
  Transmission Date: 20180509
  Serious: Yes (Other)
  Sender: FDA-Public Use
  Company Number: MX-ROCHE-2075901

PATIENT

DRUGS (5)
  1. 5-FU [Suspect]
     Active Substance: FLUOROURACIL
     Indication: COLORECTAL CANCER
     Dosage: BOLUS
     Route: 042
  2. 5-FU [Suspect]
     Active Substance: FLUOROURACIL
     Dosage: 2400-3000 MG/M2 IN 48 H EVERY 2 WEEKS
     Route: 042
  3. LEUCOVORIN. [Suspect]
     Active Substance: LEUCOVORIN
     Indication: COLORECTAL CANCER
     Route: 042
  4. CAPECITABINE. [Suspect]
     Active Substance: CAPECITABINE
     Indication: COLORECTAL CANCER
     Dosage: AFTER MEALS
     Route: 065
  5. OXALIPLATIN. [Suspect]
     Active Substance: OXALIPLATIN
     Indication: COLORECTAL CANCER
     Dosage: IN FOLFOX SCHEME: 100 MG/M2 IN 2 HOUR (H) AND IN XELOX SCHEME: 130 MG/M2 OXALIPLATIN EVERY 3 WEEKS
     Route: 042

REACTIONS (8)
  - Diarrhoea [Unknown]
  - Palmar-plantar erythrodysaesthesia syndrome [Unknown]
  - Vomiting [Unknown]
  - Dysaesthesia [Unknown]
  - Peripheral sensory neuropathy [Unknown]
  - Blood disorder [Unknown]
  - Nausea [Unknown]
  - Asthenia [Unknown]
